FAERS Safety Report 9338315 (Version 1)
Quarter: 2013Q2

REPORT INFORMATION
  Report Type: Spontaneous
  Country: US (occurrence: US)
  Receive Date: 20130610
  Receipt Date: 20130610
  Transmission Date: 20140414
  Serious: No
  Sender: FDA-Public Use
  Company Number: US-PFIZER INC-2013173150

PATIENT
  Sex: Female

DRUGS (1)
  1. PRISTIQ [Suspect]
     Indication: DEPRESSION
     Dosage: UNK
     Dates: start: 2010

REACTIONS (9)
  - Neuropathy peripheral [Unknown]
  - Disturbance in attention [Unknown]
  - Fatigue [Unknown]
  - Asthenia [Unknown]
  - Fatigue [Unknown]
  - Memory impairment [Unknown]
  - Muscular weakness [Unknown]
  - Hypoaesthesia [Unknown]
  - Arthralgia [Unknown]
